FAERS Safety Report 23194425 (Version 2)
Quarter: 2023Q4

REPORT INFORMATION
  Report Type: Report from Study
  Country: GB (occurrence: GB)
  Receive Date: 20231117
  Receipt Date: 20231121
  Transmission Date: 20240110
  Serious: Yes (Hospitalization, Other)
  Sender: FDA-Public Use
  Company Number: GB-CELLTRION INC.-2023GB022073

PATIENT

DRUGS (23)
  1. BEVACIZUMAB [Suspect]
     Active Substance: BEVACIZUMAB
     Indication: Hepatocellular carcinoma
     Dosage: 1200 MILLIGRAM
     Route: 065
     Dates: start: 20230428
  2. ATEZOLIZUMAB [Suspect]
     Active Substance: ATEZOLIZUMAB
     Indication: Hepatocellular carcinoma
     Dosage: 1200 MILLIGRAM, EVERY 3 WEEKS (START DATE OF MOST RECENT DOSE OF STUDY DRUG PRIOR TO AE ON 01/SEP/20
     Route: 042
     Dates: start: 20230428
  3. ALOGLIPTIN [Concomitant]
     Active Substance: ALOGLIPTIN
     Dosage: UNK, EVERY 1 DAY
     Dates: start: 20200330
  4. ATORVASTATIN [Concomitant]
     Active Substance: ATORVASTATIN
     Dosage: UNK, EVERY 1 DAY
     Dates: start: 20200330
  5. BUPRENORPHINE [Concomitant]
     Active Substance: BUPRENORPHINE
     Dosage: UNK
     Dates: start: 20221011
  6. CARVEDILOL [Concomitant]
     Active Substance: CARVEDILOL
     Dosage: UNK, EVERY 1 DAY
     Dates: start: 20230628
  7. CETIRIZINE [Concomitant]
     Active Substance: CETIRIZINE HYDROCHLORIDE
     Dosage: UNK, EVERY 1 DAY
     Dates: start: 20230526
  8. CHLORPHENIRAMINE MALEATE [Concomitant]
     Active Substance: CHLORPHENIRAMINE MALEATE
     Dosage: 10 MILLIGRAM
     Dates: start: 20230901, end: 20230901
  9. CHLORPHENIRAMINE MALEATE [Concomitant]
     Active Substance: CHLORPHENIRAMINE MALEATE
     Dosage: 10 MILLIGRAM
     Dates: start: 20230811, end: 20230811
  10. DAPAGLIFLOZIN [Concomitant]
     Active Substance: DAPAGLIFLOZIN
     Dosage: UNK, EVERY 1 DAY
     Dates: start: 20200330
  11. METFORMIN [Concomitant]
     Active Substance: METFORMIN HYDROCHLORIDE
     Dosage: UNK, EVERY 0.5 DAY
     Dates: start: 20200330
  12. METOCLOPRAMIDE [Concomitant]
     Active Substance: METOCLOPRAMIDE
     Dosage: UNK, EVERY 0.33 WEEK
     Dates: start: 20230623
  13. ACETAMINOPHEN [Concomitant]
     Active Substance: ACETAMINOPHEN
     Dosage: UNK
     Dates: start: 20230526
  14. PREGABALIN [Concomitant]
     Active Substance: PREGABALIN
     Dosage: UNK, EVERY 1 DAY
     Dates: start: 20200330
  15. RAMIPRIL [Concomitant]
     Active Substance: RAMIPRIL
     Dosage: UNK, EVERY 1 DAY
     Dates: start: 20200330
  16. SERTRALINE [Concomitant]
     Active Substance: SERTRALINE HYDROCHLORIDE
     Dosage: UNK, EVERY 1 DAY
     Dates: start: 20200330
  17. SILDENAFIL [Concomitant]
     Active Substance: SILDENAFIL
     Dosage: UNK
     Dates: start: 20200330
  18. COVID-19 VACCINE [Concomitant]
  19. LANTUS [Concomitant]
     Active Substance: INSULIN GLARGINE
  20. DEXTROSE [Concomitant]
     Active Substance: DEXTROSE\DEXTROSE MONOHYDRATE
  21. INFLUENZA VIRUS VACCINE QUADRIVALENT TYPE A+B [Concomitant]
     Active Substance: INFLUENZA VIRUS VACCINE QUADRIVALENT TYPE A+B
  22. AYMES COMPLETE [Concomitant]
  23. NOVORAPID [Concomitant]
     Active Substance: INSULIN ASPART

REACTIONS (5)
  - Pruritus [Not Recovered/Not Resolved]
  - Anorectal infection [Recovered/Resolved]
  - Pyrexia [Recovered/Resolved]
  - Soft tissue infection [Not Recovered/Not Resolved]
  - Intentional product use issue [Unknown]

NARRATIVE: CASE EVENT DATE: 20230902
